FAERS Safety Report 17350106 (Version 2)
Quarter: 2020Q1

REPORT INFORMATION
  Report Type: Spontaneous
  Country: US (occurrence: US)
  Receive Date: 20200130
  Receipt Date: 20200224
  Transmission Date: 20200409
  Serious: No
  Sender: FDA-Public Use
  Company Number: US-BAYER-2020-015791

PATIENT
  Sex: Female

DRUGS (1)
  1. MIRALAX [Suspect]
     Active Substance: POLYETHYLENE GLYCOL 3350
     Indication: LAXATIVE SUPPORTIVE CARE
     Dosage: CAP FILLED PASS THE WHITE LINE
     Route: 048
     Dates: start: 2015

REACTIONS (7)
  - Faeces discoloured [Unknown]
  - Product use in unapproved indication [Unknown]
  - Flatulence [Unknown]
  - Back pain [None]
  - Abdominal distension [Unknown]
  - Intestinal dilatation [Unknown]
  - Peripheral swelling [None]

NARRATIVE: CASE EVENT DATE: 2015
